FAERS Safety Report 4333778-6 (Version None)
Quarter: 2004Q2

REPORT INFORMATION
  Report Type: 
  Country: None (occurrence: None)
  Receive Date: 20040402
  Receipt Date: 20040325
  Transmission Date: 20050107
  Serious: Yes (Disabling)
  Sender: FDA-Public Use
  Company Number: NSADSS2002010407

PATIENT
  Age: 65 Year
  Sex: Male

DRUGS (5)
  1. REMINYL (GALANTAMINE) TABLETS [Suspect]
     Indication: DEMENTIA ALZHEIMER'S TYPE
     Dosage: 4 MG, 2 IN 1 DAY, ORAL
     Route: 048
     Dates: start: 20020304
  2. CELEXA (CITALOPRAM HYDROCHLORIDE) TABLETS [Concomitant]
  3. SEROQUEL (QUETIAPINE FUMARATE) UNSPECIFIED) [Concomitant]
  4. VALIUM [Concomitant]
  5. ZOLOFT [Concomitant]

REACTIONS (3)
  - AGGRESSION [None]
  - CONFUSIONAL STATE [None]
  - MANIA [None]
